FAERS Safety Report 26080324 (Version 1)
Quarter: 2025Q4

REPORT INFORMATION
  Report Type: Spontaneous
  Country: JP (occurrence: JP)
  Receive Date: 20251124
  Receipt Date: 20251124
  Transmission Date: 20260117
  Serious: Yes (Death, Hospitalization)
  Sender: AMGEN
  Company Number: JP-AMGEN-JPNSP2025229369

PATIENT
  Age: 6 Decade
  Sex: Male

DRUGS (2)
  1. BEVACIZUMAB [Suspect]
     Active Substance: BEVACIZUMAB
     Indication: Hepatocellular carcinoma
     Dosage: UNK, 11 COURSES
     Route: 065
  2. ATEZOLIZUMAB [Suspect]
     Active Substance: ATEZOLIZUMAB
     Indication: Hepatocellular carcinoma
     Dosage: UNK, 11 COURSES
     Route: 065

REACTIONS (7)
  - Acute kidney injury [Fatal]
  - Rhabdomyolysis [Unknown]
  - Endocarditis [Unknown]
  - Influenza [Unknown]
  - General physical health deterioration [Unknown]
  - Drug effective for unapproved indication [Unknown]
  - Off label use [Unknown]
